FAERS Safety Report 20322538 (Version 1)
Quarter: 2022Q1

REPORT INFORMATION
  Report Type: Spontaneous
  Country: US (occurrence: None)
  Receive Date: 20220110
  Receipt Date: 20220110
  Transmission Date: 20220424
  Serious: Yes (Other)
  Sender: FDA-Public Use
  Company Number: None

PATIENT
  Age: 55 Year
  Sex: Female
  Weight: 69.75 kg

DRUGS (2)
  1. AZITHROMYCIN ANHYDROUS [Suspect]
     Active Substance: AZITHROMYCIN ANHYDROUS
     Dosage: OTHER QUANTITY : 6 TABLET(S);?FREQUENCY : DAILY;?
     Route: 048
  2. PFIZER-BIONTECH COVID-19 VACCINE [Suspect]
     Active Substance: TOZINAMERAN
     Dosage: OTHER QUANTITY : 1 INJECTION(S);?
     Route: 030
     Dates: start: 20211229, end: 20211229

REACTIONS (12)
  - Headache [None]
  - Pain in extremity [None]
  - Neck pain [None]
  - Scar [None]
  - Pruritus [None]
  - Skin irritation [None]
  - Dry skin [None]
  - Pericardial effusion [None]
  - Pyrexia [None]
  - Nerve injury [None]
  - Skin weeping [None]
  - Skin haemorrhage [None]

NARRATIVE: CASE EVENT DATE: 20220103
